FAERS Safety Report 6993908-4 (Version None)
Quarter: 2010Q3

REPORT INFORMATION
  Report Type: 
  Country: None (occurrence: None)
  Receive Date: 20100917
  Receipt Date: 20100630
  Transmission Date: 20110219
  Serious: No
  Sender: FDA-Public Use
  Company Number: US-ASTRAZENECA-2010SE30633

PATIENT
  Age: 51 Year
  Sex: Male
  Weight: 77.1 kg

DRUGS (2)
  1. SEROQUEL [Suspect]
     Indication: BIPOLAR DISORDER
     Route: 048
     Dates: start: 20050101, end: 20100623
  2. SEROQUEL [Suspect]
     Indication: MANIA
     Route: 048
     Dates: start: 20050101, end: 20100623

REACTIONS (3)
  - DRUG DOSE OMISSION [None]
  - MANIA [None]
  - VISION BLURRED [None]
